FAERS Safety Report 23903944 (Version 1)
Quarter: 2024Q2

REPORT INFORMATION
  Report Type: Spontaneous
  Country: GB (occurrence: GB)
  Receive Date: 20240527
  Receipt Date: 20240527
  Transmission Date: 20240716
  Serious: Yes (Other)
  Sender: FDA-Public Use
  Company Number: None

PATIENT

DRUGS (2)
  1. PREDNISOLONE [Suspect]
     Active Substance: PREDNISOLONE
     Indication: Lower respiratory tract infection
     Route: 065
  2. DOXYCYCLINE [Suspect]
     Active Substance: DOXYCYCLINE\DOXYCYCLINE HYCLATE
     Indication: Lower respiratory tract infection
     Route: 065

REACTIONS (5)
  - Skin mass [Unknown]
  - Breast swelling [Unknown]
  - Arthralgia [Unknown]
  - Diarrhoea [Unknown]
  - Breast pain [Unknown]
